FAERS Safety Report 7384513-9 (Version None)
Quarter: 2011Q1

REPORT INFORMATION
  Report Type: 
  Country: None (occurrence: None)
  Receive Date: 20110322
  Receipt Date: 20110311
  Transmission Date: 20110831
  Serious: Yes (Other)
  Sender: FDA-Public Use
  Company Number: 029111

PATIENT
  Age: 58 Year
  Sex: Male

DRUGS (1)
  1. KEPPRA [Suspect]
     Dosage: 750 MG BID

REACTIONS (1)
  - LEUKOPENIA [None]
